FAERS Safety Report 26124689 (Version 1)
Quarter: 2025Q4

REPORT INFORMATION
  Report Type: Report from Study
  Country: US (occurrence: US)
  Receive Date: 20251205
  Receipt Date: 20251205
  Transmission Date: 20260118
  Serious: Yes (Other)
  Sender: ALEXION PHARMACEUTICALS
  Company Number: US-AstraZeneca-CH-01006669A

PATIENT
  Sex: Male

DRUGS (1)
  1. ULTOMIRIS [Suspect]
     Active Substance: RAVULIZUMAB-CWVZ
     Indication: Myasthenia gravis
     Dosage: UNK
     Route: 065

REACTIONS (6)
  - Malaise [Unknown]
  - Eyelid ptosis [Unknown]
  - Ophthalmoplegia [Unknown]
  - Visual impairment [Unknown]
  - Radiation sickness syndrome [Unknown]
  - Cerebrovascular accident [Unknown]
